FAERS Safety Report 7926241-4 (Version None)
Quarter: 2011Q4

REPORT INFORMATION
  Report Type: 
  Country: None (occurrence: None)
  Receive Date: 20111118
  Receipt Date: 20111110
  Transmission Date: 20120403
  Serious: Yes (Death)
  Sender: FDA-Public Use
  Company Number: US-BIOGENIDEC-2011BI040840

PATIENT
  Age: 34 Year
  Sex: Male

DRUGS (7)
  1. TYSABRI [Suspect]
     Indication: MULTIPLE SCLEROSIS
     Route: 042
     Dates: start: 20100319, end: 20110927
  2. TIZANIDINE HCL [Concomitant]
     Indication: MUSCLE SPASTICITY
     Dates: end: 20111023
  3. CYMBALTA [Concomitant]
     Indication: PRODUCT USED FOR UNKNOWN INDICATION
     Dates: end: 20111023
  4. BENADRYL [Concomitant]
     Indication: MULTIPLE ALLERGIES
     Dates: end: 20111023
  5. BACLOFEN [Concomitant]
     Indication: MUSCLE SPASTICITY
     Dates: end: 20111023
  6. PHENERGAN [Concomitant]
     Indication: NAUSEA
     Dates: end: 20111023
  7. MAXALT [Concomitant]
     Indication: MIGRAINE
     Dates: end: 20111023

REACTIONS (1)
  - ACCIDENTAL OVERDOSE [None]
